FAERS Safety Report 5754118-1 (Version None)
Quarter: 2008Q2

REPORT INFORMATION
  Report Type: 
  Country: None (occurrence: None)
  Receive Date: 20080530
  Receipt Date: 20080519
  Transmission Date: 20081010
  Serious: Yes (Other)
  Sender: FDA-Public Use
  Company Number: BR-ROCHE-565859

PATIENT
  Sex: Female

DRUGS (1)
  1. ROACUTAN [Suspect]
     Indication: ACNE
     Route: 065
     Dates: start: 19970101

REACTIONS (4)
  - DERMATITIS ALLERGIC [None]
  - IMMUNODEFICIENCY [None]
  - LIVER DISORDER [None]
  - POLYCYSTIC OVARIES [None]
